FAERS Safety Report 10167310 (Version 2)
Quarter: 2014Q2

REPORT INFORMATION
  Report Type: Spontaneous
  Country: FR (occurrence: FR)
  Receive Date: 20140512
  Receipt Date: 20140523
  Transmission Date: 20141212
  Serious: Yes (Hospitalization, Other)
  Sender: FDA-Public Use
  Company Number: FR-PFIZER INC-2014127847

PATIENT
  Age: 47 Year
  Sex: Male

DRUGS (9)
  1. ORELOX [Suspect]
     Dosage: UNK
     Route: 048
     Dates: start: 20140206, end: 20140206
  2. AUGMENTIN [Suspect]
     Dosage: UNK, TOTAL
     Route: 048
     Dates: start: 20140204, end: 20140204
  3. ASPEGIC [Concomitant]
     Dosage: UNK
     Dates: start: 20140207
  4. FLAGYL [Concomitant]
     Dosage: UNK
     Dates: start: 20140210, end: 20140215
  5. VALACICLOVIR [Concomitant]
     Dosage: UNK
     Dates: end: 20140215
  6. ROCEPHINE [Concomitant]
     Dosage: UNK
     Dates: end: 20140215
  7. CETIRIZINE [Concomitant]
     Dosage: UNK
  8. STER-DEX [Concomitant]
     Dosage: UNK
     Dates: start: 20140204
  9. PARACETAMOL [Concomitant]
     Dosage: UNK
     Dates: start: 201401

REACTIONS (8)
  - Drug reaction with eosinophilia and systemic symptoms [Recovered/Resolved]
  - Rash [Recovered/Resolved]
  - Rash generalised [Recovered/Resolved]
  - Pyrexia [Recovered/Resolved]
  - Skin lesion [Recovered/Resolved]
  - Tonsillitis [Recovered/Resolved]
  - Dyspnoea [Recovered/Resolved]
  - Lymphadenopathy [Recovered/Resolved]
